FAERS Safety Report 9707081 (Version 1)
Quarter: 2013Q4

REPORT INFORMATION
  Report Type: Spontaneous
  Country: US (occurrence: US)
  Receive Date: 20131125
  Receipt Date: 20131125
  Transmission Date: 20140711
  Serious: No
  Sender: FDA-Public Use
  Company Number: US-BAYER-2013-143031

PATIENT
  Age: 70 Year
  Sex: Male
  Weight: 98 kg

DRUGS (5)
  1. ALEVE CAPLET [Suspect]
     Indication: ANALGESIC THERAPY
     Dosage: 2 DF, BID
     Route: 048
     Dates: start: 20131107, end: 20131110
  2. ASPIRIN [Concomitant]
  3. GLUCOPHAGE [Concomitant]
  4. METFORMIN [Concomitant]
  5. PENTOXIFYLLINE [Concomitant]

REACTIONS (4)
  - Abdominal distension [Not Recovered/Not Resolved]
  - Nausea [Not Recovered/Not Resolved]
  - Wheezing [Not Recovered/Not Resolved]
  - Extra dose administered [None]
